FAERS Safety Report 5842335-1 (Version None)
Quarter: 2008Q3

REPORT INFORMATION
  Report Type: 
  Country: None (occurrence: None)
  Receive Date: 20080731
  Receipt Date: 20080402
  Transmission Date: 20090109
  Serious: No
  Sender: FDA-Public Use
  Company Number: US200803001956

PATIENT
  Age: 74 Year
  Sex: Female

DRUGS (3)
  1. BYETTA [Suspect]
     Indication: TYPE 2 DIABETES MELLITUS
     Dosage: 5 UG, DAILY (1/D), SUBCUTANEOUS ; 5 UG, 2/D, SUBCUTANEOUS
     Route: 058
     Dates: start: 20080201, end: 20080301
  2. BYETTA [Suspect]
     Indication: TYPE 2 DIABETES MELLITUS
     Dosage: 5 UG, DAILY (1/D), SUBCUTANEOUS ; 5 UG, 2/D, SUBCUTANEOUS
     Route: 058
     Dates: start: 20080201
  3. AMARYL [Concomitant]

REACTIONS (4)
  - COLD SWEAT [None]
  - FEELING ABNORMAL [None]
  - MALAISE [None]
  - NAUSEA [None]
